FAERS Safety Report 9519291 (Version 1)
Quarter: 2013Q3

REPORT INFORMATION
  Report Type: Spontaneous
  Country: US (occurrence: None)
  Receive Date: 20130911
  Receipt Date: 20130911
  Transmission Date: 20140515
  Serious: No
  Sender: FDA-Public Use
  Company Number: None

PATIENT
  Age: 47 Year
  Sex: Female

DRUGS (1)
  1. WARFARIN [Suspect]
     Indication: PULMONARY EMBOLISM
     Route: 048
     Dates: start: 20130810, end: 20130825

REACTIONS (1)
  - Headache [None]
